FAERS Safety Report 9749679 (Version 1)
Quarter: 2013Q4

REPORT INFORMATION
  Report Type: Report from Study
  Country: DE (occurrence: TR)
  Receive Date: 20131212
  Receipt Date: 20131212
  Transmission Date: 20140711
  Serious: Yes (Death)
  Sender: FDA-Public Use
  Company Number: DE-ACTELION-A-NJ2013-92366

PATIENT
  Age: 81 Year
  Sex: Female
  Weight: 79 kg

DRUGS (1)
  1. VENTAVIS [Suspect]
     Indication: PULMONARY ARTERIAL HYPERTENSION
     Dosage: 6 X 1
     Route: 055
     Dates: start: 20121207

REACTIONS (1)
  - Cardiac failure [Fatal]
